FAERS Safety Report 4768107-7 (Version None)
Quarter: 2005Q3

REPORT INFORMATION
  Report Type: 
  Country: None (occurrence: None)
  Receive Date: 20050912
  Receipt Date: 20050912
  Transmission Date: 20060218
  Serious: Yes (Other)
  Sender: FDA-Public Use
  Company Number: None

PATIENT
  Age: 35 Year
  Sex: Male

DRUGS (1)
  1. KETOCONAZOLE 200 MG PLIVA [Suspect]
     Indication: FUNGAL INFECTION
     Dosage: 200 MG DAILY PO
     Route: 048
     Dates: start: 20050624, end: 20050624

REACTIONS (2)
  - RASH [None]
  - URTICARIA [None]
